FAERS Safety Report 4972121-6 (Version None)
Quarter: 2006Q2

REPORT INFORMATION
  Report Type: 
  Country: None (occurrence: None)
  Receive Date: 20060412
  Receipt Date: 20060412
  Transmission Date: 20061013
  Serious: No
  Sender: FDA-Public Use
  Company Number: None

PATIENT
  Sex: Male

DRUGS (1)
  1. METHADONE HCL [Suspect]
     Dosage: 75 MG PO QD
     Route: 048
     Dates: start: 20060317, end: 20060401

REACTIONS (2)
  - CONSTIPATION [None]
  - FAECALOMA [None]
